FAERS Safety Report 19180371 (Version 3)
Quarter: 2021Q3

REPORT INFORMATION
  Report Type: Report from Study
  Country: CO (occurrence: CO)
  Receive Date: 20210426
  Receipt Date: 20210702
  Transmission Date: 20211014
  Serious: Yes (Hospitalization)
  Sender: FDA-Public Use
  Company Number: NVSC2021CO086671

PATIENT
  Age: 38 Year
  Sex: Male
  Weight: 67 kg

DRUGS (6)
  1. JADENU [Suspect]
     Active Substance: DEFERASIROX
     Indication: IRON OVERLOAD
     Dosage: 360 MG, QD (FROM 1 YEAR AGO)
     Route: 048
  2. LEVOMEPROMAZINE [Concomitant]
     Active Substance: LEVOMEPROMAZINE
     Indication: INSOMNIA
     Dosage: 25 DRP, QD
     Route: 048
  3. SIGNALIN [Concomitant]
     Indication: HEADACHE
     Dosage: 500 MG, Q8H (10 YEARS AGO)
     Route: 048
  4. LEVETIRACETAM. [Concomitant]
     Active Substance: LEVETIRACETAM
     Indication: EPILEPSY
     Dosage: 2000 MG, Q12H
     Route: 048
  5. OMEPRAZOLE. [Concomitant]
     Active Substance: OMEPRAZOLE
     Indication: GASTRITIS PROPHYLAXIS
     Dosage: 20 MG, Q12H
     Route: 048
  6. MORPHINE [Concomitant]
     Active Substance: MORPHINE
     Indication: SPINAL PAIN
     Dosage: 15 DRP, QD
     Route: 065

REACTIONS (6)
  - Illness [Unknown]
  - SARS-CoV-2 test positive [Recovered/Resolved]
  - Cough [Unknown]
  - Thrombosis [Unknown]
  - Dyspnoea [Recovered/Resolved]
  - Haemoglobin decreased [Unknown]

NARRATIVE: CASE EVENT DATE: 202103
